FAERS Safety Report 10085139 (Version 5)
Quarter: 2015Q3

REPORT INFORMATION
  Report Type: Report from Study
  Country: US (occurrence: US)
  Receive Date: 20140417
  Receipt Date: 20150824
  Transmission Date: 20151125
  Serious: No
  Sender: FDA-Public Use
  Company Number: US-GILEAD-2014-0099781

PATIENT
  Age: 70 Year
  Sex: Female

DRUGS (4)
  1. AMBRISENTAN [Suspect]
     Active Substance: AMBRISENTAN
     Indication: PULMONARY ARTERIAL HYPERTENSION
     Dosage: 10 MG, QD
     Route: 065
     Dates: start: 20130318
  2. REVATIO [Concomitant]
     Active Substance: SILDENAFIL CITRATE
  3. WARFARIN [Concomitant]
     Active Substance: WARFARIN
  4. TYVASO [Concomitant]
     Active Substance: TREPROSTINIL

REACTIONS (3)
  - Visual impairment [Unknown]
  - Eye swelling [Unknown]
  - Herpes zoster [Unknown]
